FAERS Safety Report 8330869-X (Version None)
Quarter: 2012Q2

REPORT INFORMATION
  Report Type: 
  Country: None (occurrence: None)
  Receive Date: 20120502
  Receipt Date: 20120402
  Transmission Date: 20120825
  Serious: No
  Sender: FDA-Public Use
  Company Number: US-AMGEN-USASP2011008433

PATIENT
  Age: 39 Year
  Sex: Male
  Weight: 93.424 kg

DRUGS (4)
  1. ENBREL [Suspect]
     Indication: RHEUMATOID ARTHRITIS
     Dosage: 50 MG, QWK
     Route: 058
     Dates: start: 20110119
  2. ADDERALL 5 [Concomitant]
     Indication: ATTENTION DEFICIT/HYPERACTIVITY DISORDER
     Dosage: 30 MG, BID
     Route: 048
  3. TAZORAC [Concomitant]
     Indication: PSORIASIS
     Dosage: UNK UNK, PRN
     Route: 061
  4. OXYCONTIN [Concomitant]
     Indication: PAIN
     Dosage: 20 MG, QD
     Route: 048

REACTIONS (2)
  - FATIGUE [None]
  - RHINORRHOEA [None]
